FAERS Safety Report 8318843-0 (Version None)
Quarter: 2012Q2

REPORT INFORMATION
  Report Type: 
  Country: None (occurrence: None)
  Receive Date: 20120427
  Receipt Date: 20090826
  Transmission Date: 20120825
  Serious: No
  Sender: FDA-Public Use
  Company Number: US-TEVA-2009009978

PATIENT
  Sex: Male
  Weight: 72.64 kg

DRUGS (5)
  1. TRUVADA [Concomitant]
  2. NUVIGIL [Suspect]
     Indication: NARCOLEPSY
     Route: 048
     Dates: start: 20090813
  3. NORVIR [Concomitant]
  4. WELLBUTRIN XL [Concomitant]
  5. REYATAZ [Concomitant]

REACTIONS (1)
  - DRUG EFFECT DECREASED [None]
